FAERS Safety Report 11156910 (Version 1)
Quarter: 2015Q2

REPORT INFORMATION
  Report Type: Spontaneous
  Country: US (occurrence: US)
  Receive Date: 20150602
  Receipt Date: 20150602
  Transmission Date: 20150821
  Serious: Yes (Other)
  Sender: FDA-Public Use
  Company Number: US-TEVA-565838USA

PATIENT
  Sex: Female

DRUGS (4)
  1. REBIF [Suspect]
     Active Substance: INTERFERON BETA-1A
     Indication: PRIMARY PROGRESSIVE MULTIPLE SCLEROSIS
     Route: 065
  2. BETASERON [Suspect]
     Active Substance: INTERFERON BETA-1B
     Indication: PRIMARY PROGRESSIVE MULTIPLE SCLEROSIS
     Route: 065
  3. COPAXONE [Suspect]
     Active Substance: GLATIRAMER ACETATE
     Indication: PRIMARY PROGRESSIVE MULTIPLE SCLEROSIS
     Dosage: UNKNOWN FORM STRENGTH
     Route: 065
  4. AVONEX [Suspect]
     Active Substance: INTERFERON BETA-1A
     Indication: PRIMARY PROGRESSIVE MULTIPLE SCLEROSIS
     Route: 065

REACTIONS (14)
  - Primary progressive multiple sclerosis [Unknown]
  - Urinary tract infection [Unknown]
  - Feeling abnormal [Unknown]
  - Off label use [Unknown]
  - Restless legs syndrome [Unknown]
  - Paraesthesia [Unknown]
  - Band sensation [Unknown]
  - Product use issue [Unknown]
  - Neuropathy peripheral [Unknown]
  - Skin discolouration [Unknown]
  - Motor dysfunction [Unknown]
  - Pain [Unknown]
  - Oedema peripheral [Unknown]
  - Fatigue [Unknown]
